FAERS Safety Report 5579008-9 (Version None)
Quarter: 2008Q1

REPORT INFORMATION
  Report Type: 
  Country: None (occurrence: None)
  Receive Date: 20080102
  Receipt Date: 20071221
  Transmission Date: 20080703
  Serious: Yes (Hospitalization)
  Sender: FDA-Public Use
  Company Number: BR-AVENTIS-200721601GDDC

PATIENT
  Age: 72 Year
  Sex: Female

DRUGS (10)
  1. ARAVA [Suspect]
     Indication: ARTHRITIS
     Dosage: DOSE: 1 TABLET
     Route: 048
     Dates: start: 20060101, end: 20070101
  2. ARAVA [Suspect]
     Dosage: DOSE: 1 TABLET
     Route: 048
     Dates: start: 20070101
  3. GABAPENTIN [Concomitant]
     Route: 048
  4. FLUOXETINE [Concomitant]
     Route: 048
  5. ALENDRONATE SODIUM [Concomitant]
     Dosage: DOSE: 1 CAPSULE
     Route: 048
  6. OXYCONTIN [Concomitant]
     Indication: PAIN
     Dosage: DOSE: UNK
     Route: 048
     Dates: start: 20060101
  7. MIACALCIN [Concomitant]
     Dosage: DOSE: 1 APPLICATION
     Route: 061
  8. METICORTEN [Concomitant]
     Indication: INFLAMMATION
     Dosage: DOSE: 1 CAPSULE
     Route: 048
  9. OMEPRAZOLE [Concomitant]
     Dosage: DOSE: UNK
     Route: 048
  10. ENALAPRIL [Concomitant]
     Indication: HYPERTENSION
     Dosage: DOSE: UNK
     Route: 048

REACTIONS (1)
  - SPINAL COMPRESSION FRACTURE [None]
